FAERS Safety Report 15343618 (Version 2)
Quarter: 2018Q3

REPORT INFORMATION
  Report Type: Spontaneous
  Country: US (occurrence: US)
  Receive Date: 20180903
  Receipt Date: 20180919
  Transmission Date: 20181010
  Serious: No
  Sender: FDA-Public Use
  Company Number: US-PFIZER INC-2018349665

PATIENT
  Age: 76 Year
  Sex: Male

DRUGS (4)
  1. LYRICA [Concomitant]
     Active Substance: PREGABALIN
     Indication: PULMONARY HYPERTENSION
     Dosage: 200 MG, 3X/DAY
  2. GABAPENTIN. [Suspect]
     Active Substance: GABAPENTIN
     Indication: PULMONARY HYPERTENSION
     Dosage: 1200 MG, 3X/DAY [600 MG 2 CAP]
  3. GRALISE [Concomitant]
     Active Substance: GABAPENTIN
     Indication: PULMONARY HYPERTENSION
     Dosage: 600 MG, 3X/DAY
     Dates: end: 201805
  4. NORTRIPTYLINE [Concomitant]
     Active Substance: NORTRIPTYLINE
     Indication: PULMONARY HYPERTENSION
     Dosage: 10 MG, 1X/DAY

REACTIONS (1)
  - Skin disorder [Unknown]
